FAERS Safety Report 10716802 (Version 3)
Quarter: 2015Q1

REPORT INFORMATION
  Report Type: Spontaneous
  Country: US (occurrence: US)
  Receive Date: 20150116
  Receipt Date: 20150306
  Transmission Date: 20150721
  Serious: Yes (Death)
  Sender: FDA-Public Use
  Company Number: US-009507513-1501USA004246

PATIENT
  Age: 15 Year
  Sex: Male

DRUGS (1)
  1. CORICIDIN HBP COUGH AND COLD [Suspect]
     Active Substance: CHLORPHENIRAMINE MALEATE\DEXTROMETHORPHAN HYDROBROMIDE
     Indication: PRODUCT USED FOR UNKNOWN INDICATION
     Dosage: UNK, UNKNOWN
     Route: 048
     Dates: start: 201412

REACTIONS (5)
  - Unevaluable event [Fatal]
  - Overdose [Fatal]
  - Apnoea [Fatal]
  - Unresponsive to stimuli [Fatal]
  - Dyspnoea [Fatal]

NARRATIVE: CASE EVENT DATE: 201412
